FAERS Safety Report 21789184 (Version 1)
Quarter: 2022Q4

REPORT INFORMATION
  Report Type: Spontaneous
  Country: IN (occurrence: IN)
  Receive Date: 20221228
  Receipt Date: 20221228
  Transmission Date: 20230112
  Serious: Yes (Other)
  Sender: FDA-Public Use
  Company Number: IN-PFIZER INC-PV202200130273

PATIENT
  Age: 66 Year
  Sex: Male

DRUGS (2)
  1. FLUCONAZOLE [Suspect]
     Active Substance: FLUCONAZOLE
     Indication: Candida infection
     Dosage: UNK
  2. FLUCONAZOLE [Suspect]
     Active Substance: FLUCONAZOLE
     Indication: Urinary tract infection fungal

REACTIONS (3)
  - Drug resistance [Unknown]
  - Drug ineffective [Unknown]
  - Azotaemia [Unknown]
